FAERS Safety Report 14477084 (Version 1)
Quarter: 2018Q1

REPORT INFORMATION
  Report Type: Report from Study
  Country: US (occurrence: US)
  Receive Date: 20180201
  Receipt Date: 20180201
  Transmission Date: 20180509
  Serious: No
  Sender: FDA-Public Use
  Company Number: US-EXELIXIS-CABO-17009164

PATIENT
  Sex: Female

DRUGS (2)
  1. CABOMETYX [Suspect]
     Active Substance: CABOZANTINIB S-MALATE
     Indication: RENAL CANCER
     Dosage: 60 MG, QD
     Route: 048
     Dates: start: 20170421
  2. CABOMETYX [Suspect]
     Active Substance: CABOZANTINIB S-MALATE
     Dosage: 40 MG, QD
     Route: 048
     Dates: start: 201705

REACTIONS (8)
  - Scab [Not Recovered/Not Resolved]
  - Dizziness [Unknown]
  - Refractory cancer [Unknown]
  - Abdominal discomfort [Unknown]
  - Dysphonia [Unknown]
  - Rash [Unknown]
  - Fatigue [Unknown]
  - Alopecia [Unknown]
